FAERS Safety Report 18847361 (Version 1)
Quarter: 2021Q1

REPORT INFORMATION
  Report Type: Spontaneous
  Country: US (occurrence: US)
  Receive Date: 20210204
  Receipt Date: 20210204
  Transmission Date: 20210419
  Serious: No
  Sender: FDA-Public Use
  Company Number: US-ALLERGAN-2031376US

PATIENT
  Sex: Female

DRUGS (1)
  1. BOTOX [Suspect]
     Active Substance: ONABOTULINUMTOXINA
     Indication: MIGRAINE
     Dosage: 155 UNITS, SINGLE
     Dates: start: 20200629, end: 20200629

REACTIONS (12)
  - Injection site pain [Recovering/Resolving]
  - Neck pain [Unknown]
  - Vision blurred [Unknown]
  - Visual impairment [Recovering/Resolving]
  - Injection site nerve damage [Recovered/Resolved]
  - Condition aggravated [Recovering/Resolving]
  - Headache [Recovering/Resolving]
  - Disturbance in attention [Recovering/Resolving]
  - Fatigue [Recovering/Resolving]
  - Muscular weakness [Unknown]
  - Dizziness [Unknown]
  - Movement disorder [Unknown]

NARRATIVE: CASE EVENT DATE: 2020
